FAERS Safety Report 5128221-3 (Version None)
Quarter: 2006Q4

REPORT INFORMATION
  Report Type: 
  Country: None (occurrence: None)
  Receive Date: 20061017
  Receipt Date: 20060807
  Transmission Date: 20070319
  Serious: Yes (Other)
  Sender: FDA-Public Use
  Company Number: US-BAYER-200613353BCC

PATIENT
  Age: 57 Year
  Sex: Male
  Weight: 90 kg

DRUGS (18)
  1. ALEVE [Suspect]
     Indication: DRUG USE FOR UNKNOWN INDICATION
     Dosage: UNIT DOSE: 220 MG
     Route: 048
  2. LODINE [Suspect]
     Indication: ARTHRITIS
     Dosage: TOTAL DAILY DOSE: 800 MG  UNIT DOSE: 400 MG
     Route: 048
     Dates: start: 20050501, end: 20050701
  3. EXCEDRIN (MIGRAINE) [Suspect]
  4. EXCEDRIN (MIGRAINE) [Suspect]
  5. ASPIRIN [Suspect]
  6. MOBIC [Concomitant]
  7. FLUTICASONE PROPIONATE [Concomitant]
  8. NASONEX [Concomitant]
  9. ATENOLOL [Concomitant]
     Dosage: TOTAL DAILY DOSE: 50 MG  UNIT DOSE: 50 MG
  10. DIPROLENE [Concomitant]
  11. SELENIUM SULFIDE [Concomitant]
     Route: 061
  12. HYDROCHLOROTHIAZIDE [Concomitant]
     Dosage: AS USED: 25- MG  UNIT DOSE: 25 MG
  13. CELEBREX [Concomitant]
  14. ZYRTEC [Concomitant]
  15. TYLENOL [Concomitant]
  16. VITAMIN E [Concomitant]
  17. SELENIUM SULFIDE [Concomitant]
  18. MULTI-VITAMIN [Concomitant]

REACTIONS (12)
  - ABDOMINAL DISCOMFORT [None]
  - ABDOMINAL PAIN UPPER [None]
  - ANOREXIA [None]
  - CONSTIPATION [None]
  - FATIGUE [None]
  - GASTRIC HAEMORRHAGE [None]
  - HELICOBACTER PYLORI IDENTIFICATION TEST POSITIVE [None]
  - IRON DEFICIENCY ANAEMIA [None]
  - MELAENA [None]
  - PICA [None]
  - STOMACH DISCOMFORT [None]
  - WEIGHT DECREASED [None]
